FAERS Safety Report 4423749-3 (Version None)
Quarter: 2004Q3

REPORT INFORMATION
  Report Type: 
  Country: None (occurrence: None)
  Receive Date: 20040805
  Receipt Date: 20040726
  Transmission Date: 20050211
  Serious: Yes (Life-Threatening)
  Sender: FDA-Public Use
  Company Number: MAG-2004-0000284

PATIENT
  Age: 73 Year
  Sex: Male
  Weight: 85 kg

DRUGS (2)
  1. POVIDONE IODINE [Suspect]
     Dosage: 1 APPLIC, SINGLE, TOPICAL
     Route: 061
     Dates: start: 20040611, end: 20040611
  2. PYOSTACINE (PRISTINAMYCIN) [Suspect]
     Dosage: 3 GRAM, DAILY, ORAL
     Route: 048
     Dates: start: 20040611, end: 20040611

REACTIONS (3)
  - ANAPHYLACTIC SHOCK [None]
  - IODINE ALLERGY [None]
  - PYREXIA [None]
